FAERS Safety Report 13189292 (Version 4)
Quarter: 2017Q3

REPORT INFORMATION
  Report Type: Spontaneous
  Country: JP (occurrence: JP)
  Receive Date: 20170206
  Receipt Date: 20170913
  Transmission Date: 20171127
  Serious: Yes (Other)
  Sender: FDA-Public Use
  Company Number: JP-MALLINCKRODT-T201505011

PATIENT
  Age: 60 Year
  Sex: Female
  Weight: 39 kg

DRUGS (22)
  1. METHADONE [Suspect]
     Active Substance: METHADONE HYDROCHLORIDE
     Dosage: 10 MG (30 MG DAILY DOSE)
     Route: 048
     Dates: start: 20150519, end: 20150527
  2. METHADONE [Suspect]
     Active Substance: METHADONE HYDROCHLORIDE
     Dosage: 25 MG DAILY DOSE
     Route: 048
     Dates: start: 20150528, end: 20150623
  3. METHADONE [Suspect]
     Active Substance: METHADONE HYDROCHLORIDE
     Dosage: 25 MG DAILY DOSE
     Route: 048
     Dates: start: 20150708, end: 20150804
  4. MEXITIL [Concomitant]
     Active Substance: MEXILETINE HYDROCHLORIDE
     Indication: ANALGESIC THERAPY
     Dosage: 300 MG
     Route: 048
     Dates: start: 20150406
  5. VOLTAREN [Concomitant]
     Active Substance: DICLOFENAC SODIUM
     Indication: ANALGESIC THERAPY
     Dosage: 100 MG
     Route: 048
     Dates: start: 20111209
  6. LYRICA [Concomitant]
     Active Substance: PREGABALIN
     Indication: ANALGESIC THERAPY
     Dosage: 100 MG
     Route: 048
     Dates: start: 20150213
  7. METHADONE [Suspect]
     Active Substance: METHADONE HYDROCHLORIDE
     Dosage: 10 MG, 30 MG DAILY DOSE
     Route: 048
     Dates: start: 20150624, end: 20150707
  8. METHADONE [Suspect]
     Active Substance: METHADONE HYDROCHLORIDE
     Dosage: 20 MG DAILY DOSE
     Route: 048
     Dates: start: 20150805
  9. ENSURE [Concomitant]
     Active Substance: AMINO ACIDS\DEXTROSE\ELECTROLYTES NOS\SOYBEAN OIL\VITAMINS
     Dosage: 750 ML
     Route: 048
     Dates: start: 20151206, end: 20151219
  10. NOVAMIN (PROCHLORPERAZINE MALEATE) [Concomitant]
     Active Substance: PROCHLORPERAZINE MALEATE
     Dosage: 15 MG
     Route: 048
     Dates: start: 20151206, end: 20151225
  11. OXINORM [Concomitant]
     Active Substance: OXYCODONE HYDROCHLORIDE
     Indication: ANALGESIC THERAPY
     Dosage: 10-20 MG PRN
     Route: 051
     Dates: start: 20150512
  12. METHADONE [Suspect]
     Active Substance: METHADONE HYDROCHLORIDE
     Dosage: 25 MG, 75 MG DAILY DOSE
     Route: 048
     Dates: start: 20151206, end: 20151219
  13. OXINORM [Concomitant]
     Active Substance: OXYCODONE HYDROCHLORIDE
     Dosage: 80 MG
     Route: 048
     Dates: start: 20151206, end: 20151225
  14. GENINAX [Concomitant]
     Active Substance: GARENOXACIN MESYLATE
     Indication: PRODUCT USED FOR UNKNOWN INDICATION
     Dosage: 400 MG
     Route: 048
     Dates: start: 20151211, end: 20160104
  15. LUNESTA [Concomitant]
     Active Substance: ESZOPICLONE
     Indication: PRODUCT USED FOR UNKNOWN INDICATION
     Dosage: 1 MG
     Route: 048
     Dates: start: 20151211, end: 20160104
  16. METHADONE [Suspect]
     Active Substance: METHADONE HYDROCHLORIDE
     Indication: CANCER PAIN
     Dosage: 5 MG (15 MG DAILY DOSE)
     Route: 048
     Dates: start: 20150512, end: 20150518
  17. OXYFAST [Concomitant]
     Active Substance: OXYCODONE
     Indication: ANALGESIC THERAPY
     Dosage: 7.2 MG, PRN
     Route: 051
     Dates: start: 20150511, end: 20150512
  18. CALONAL [Concomitant]
     Active Substance: ACETAMINOPHEN
     Indication: ANALGESIC THERAPY
     Dosage: 2400 MG
     Route: 048
     Dates: start: 20120203
  19. ITRIZOLE [Concomitant]
     Active Substance: ITRACONAZOLE
     Dosage: 50 MG
     Route: 048
     Dates: start: 20151206, end: 20151225
  20. TRAVELMIN [Concomitant]
     Active Substance: DIMENHYDRINATE
     Indication: PRODUCT USED FOR UNKNOWN INDICATION
     Dosage: 6 DF
     Route: 048
     Dates: start: 20151211, end: 20160104
  21. BIOFERMIN [Concomitant]
     Active Substance: BACILLUS SUBTILIS\LACTOBACILLUS ACIDOPHILUS\STREPTOCOCCUS FAECAIS
     Indication: PRODUCT USED FOR UNKNOWN INDICATION
     Dosage: 3 DF
     Route: 048
     Dates: start: 20151211, end: 20160104
  22. LULLAN [Concomitant]
     Active Substance: PEROSPIRONE HYDROCHLORIDE
     Indication: ANALGESIC THERAPY
     Dosage: 4 MG
     Route: 048
     Dates: start: 20151211, end: 20160104

REACTIONS (3)
  - Pulmonary mycosis [Not Recovered/Not Resolved]
  - Lung infection [Not Recovered/Not Resolved]
  - Somnolence [Recovered/Resolved]

NARRATIVE: CASE EVENT DATE: 20150527
